FAERS Safety Report 16384120 (Version 2)
Quarter: 2019Q3

REPORT INFORMATION
  Report Type: Spontaneous
  Country: SE (occurrence: SE)
  Receive Date: 20190603
  Receipt Date: 20190701
  Transmission Date: 20191004
  Serious: Yes (Hospitalization, Other)
  Sender: FDA-Public Use
  Company Number: SE-PFIZER INC-2019227313

PATIENT
  Age: 67 Year
  Sex: Female

DRUGS (1)
  1. OESTRING [Suspect]
     Active Substance: ESTRADIOL
     Dosage: UNK

REACTIONS (5)
  - Pancreatitis [Unknown]
  - Ill-defined disorder [Unknown]
  - Biliary tract disorder [Unknown]
  - Fall [Unknown]
  - Back injury [Unknown]
